FAERS Safety Report 14708766 (Version 1)
Quarter: 2018Q2

REPORT INFORMATION
  Report Type: Spontaneous
  Country: US (occurrence: US)
  Receive Date: 20180403
  Receipt Date: 20180403
  Transmission Date: 20180711
  Serious: No
  Sender: FDA-Public Use
  Company Number: US-PFIZER INC-2018133588

PATIENT
  Sex: Female
  Weight: 45 kg

DRUGS (4)
  1. LANACANE /00104701/ [Suspect]
     Active Substance: BENZOCAINE
  2. CAPSAICIN. [Suspect]
     Active Substance: CAPSAICIN
     Indication: HERPES ZOSTER
  3. NEURONTIN [Suspect]
     Active Substance: GABAPENTIN
     Indication: NEURALGIA
     Dates: start: 2016, end: 2016
  4. BIOFREEZE [Suspect]
     Active Substance: MENTHOL
     Indication: HERPES ZOSTER
     Dosage: 1X/DAY, ROLLS IT ON BEFORE BEDTIME

REACTIONS (1)
  - Drug ineffective for unapproved indication [Not Recovered/Not Resolved]

NARRATIVE: CASE EVENT DATE: 2016
